FAERS Safety Report 10736332 (Version 2)
Quarter: 2015Q1

REPORT INFORMATION
  Report Type: Report from Study
  Country: JP (occurrence: JP)
  Receive Date: 20150126
  Receipt Date: 20150202
  Transmission Date: 20150721
  Serious: Yes (Death)
  Sender: FDA-Public Use
  Company Number: JP-ASTRAZENECA-2014SE92973

PATIENT
  Age: 24060 Day
  Sex: Male

DRUGS (7)
  1. INNOLET N [Concomitant]
     Indication: TYPE 2 DIABETES MELLITUS
     Route: 065
     Dates: end: 20141023
  2. RINDERON V [Concomitant]
     Active Substance: BETAMETHASONE VALERATE
     Indication: PROPHYLAXIS
     Route: 048
  3. TENELIA [Concomitant]
     Active Substance: CITALOPRAM HYDROBROMIDE
     Indication: TYPE 2 DIABETES MELLITUS
     Route: 048
  4. ACTOS [Concomitant]
     Active Substance: PIOGLITAZONE HYDROCHLORIDE
     Indication: TYPE 2 DIABETES MELLITUS
     Route: 048
  5. FORXIGA [Suspect]
     Active Substance: DAPAGLIFLOZIN
     Indication: TYPE 2 DIABETES MELLITUS
     Route: 048
     Dates: start: 20140912, end: 20141117
  6. TEGRETOL [Concomitant]
     Active Substance: CARBAMAZEPINE
     Indication: PROPHYLAXIS
     Route: 048
  7. KEPPRA [Concomitant]
     Active Substance: LEVETIRACETAM
     Indication: PROPHYLAXIS
     Route: 048

REACTIONS (1)
  - Pneumonia aspiration [Fatal]

NARRATIVE: CASE EVENT DATE: 20141117
